FAERS Safety Report 17800307 (Version 1)
Quarter: 2020Q2

REPORT INFORMATION
  Report Type: Report from Study
  Country: None (occurrence: BR)
  Receive Date: 20200519
  Receipt Date: 20200519
  Transmission Date: 20200714
  Serious: Yes (Other)
  Sender: FDA-Public Use
  Company Number: BR-ABBVIE-20K-020-3400133-00

PATIENT

DRUGS (1)
  1. HUMIRA [Suspect]
     Active Substance: ADALIMUMAB
     Indication: PRODUCT USED FOR UNKNOWN INDICATION
     Route: 058

REACTIONS (8)
  - Mouth ulceration [Unknown]
  - Mouth injury [Unknown]
  - Pharyngeal ulceration [Unknown]
  - Immunodeficiency [Unknown]
  - Tooth injury [Unknown]
  - Anaemia [Unknown]
  - Renal failure [Unknown]
  - Pharyngeal injury [Unknown]
